FAERS Safety Report 9863875 (Version 1)
Quarter: 2014Q1

REPORT INFORMATION
  Report Type: Spontaneous
  Country: FR (occurrence: FR)
  Receive Date: 20140203
  Receipt Date: 20140203
  Transmission Date: 20141002
  Serious: Yes (Hospitalization)
  Sender: FDA-Public Use
  Company Number: FR-GLAXOSMITHKLINE-B0963986A

PATIENT
  Age: 50 Year
  Sex: Male

DRUGS (10)
  1. ZELITREX [Suspect]
     Indication: PRODUCT USED FOR UNKNOWN INDICATION
     Dosage: 500MG TWICE PER DAY
     Route: 048
     Dates: end: 20121226
  2. IBUPROFENE [Suspect]
     Indication: PAIN
     Dosage: 800MG CUMULATIVE DOSE
     Route: 048
     Dates: start: 20131221, end: 20131222
  3. BACTRIM FORTE [Suspect]
     Indication: OPPORTUNISTIC INFECTION PROPHYLAXIS
     Route: 048
     Dates: start: 201307, end: 20131226
  4. INEXIUM [Suspect]
     Indication: PRODUCT USED FOR UNKNOWN INDICATION
     Dosage: 40MG PER DAY
     Route: 048
     Dates: start: 201307, end: 20131226
  5. SPECIAFOLDINE [Concomitant]
  6. ISENTRESS [Concomitant]
  7. TRUVADA [Concomitant]
  8. SEROPRAM [Concomitant]
  9. IMOVANE [Concomitant]
  10. CHEMOTHERAPY [Concomitant]
     Indication: LYMPHOMA
     Dates: start: 20131105, end: 20131108

REACTIONS (2)
  - Agranulocytosis [Recovered/Resolved]
  - Pyrexia [Recovered/Resolved]
